FAERS Safety Report 18929110 (Version 2)
Quarter: 2021Q1

REPORT INFORMATION
  Report Type: Spontaneous
  Country: US (occurrence: US)
  Receive Date: 20210223
  Receipt Date: 20210304
  Transmission Date: 20210420
  Serious: Yes (Hospitalization)
  Sender: FDA-Public Use
  Company Number: US-PFIZER INC-2021166241

PATIENT
  Age: 66 Year
  Sex: Male

DRUGS (8)
  1. ZONISAMIDE. [Concomitant]
     Active Substance: ZONISAMIDE
     Indication: PSYCHOTIC SYMPTOM
     Dosage: 300 MG, 1X/DAY EVERY NIGHTLY
  2. LEVETIRACETAM. [Concomitant]
     Active Substance: LEVETIRACETAM
     Indication: MAJOR DEPRESSION
  3. LORAZEPAM. [Suspect]
     Active Substance: LORAZEPAM
     Indication: MAJOR DEPRESSION
  4. FLUOXETINE [Concomitant]
     Active Substance: FLUOXETINE HYDROCHLORIDE
     Indication: MAJOR DEPRESSION
  5. LORAZEPAM. [Suspect]
     Active Substance: LORAZEPAM
     Indication: PSYCHOTIC SYMPTOM
     Dosage: 1 MG EVERY MORNING AND 2 MG EVERY EVENING
  6. ZONISAMIDE. [Concomitant]
     Active Substance: ZONISAMIDE
     Indication: MAJOR DEPRESSION
  7. LEVETIRACETAM. [Concomitant]
     Active Substance: LEVETIRACETAM
     Indication: PSYCHOTIC SYMPTOM
     Dosage: 750 MG, 1X/DAY EVERY NIGHTLY (EXTENDED?RELEASE)
  8. FLUOXETINE [Concomitant]
     Active Substance: FLUOXETINE HYDROCHLORIDE
     Indication: PSYCHOTIC SYMPTOM
     Dosage: 20 MG, DAILY

REACTIONS (2)
  - Cognitive disorder [Unknown]
  - Condition aggravated [Unknown]
